FAERS Safety Report 12331576 (Version 2)
Quarter: 2016Q2

REPORT INFORMATION
  Report Type: Spontaneous
  Country: US (occurrence: US)
  Receive Date: 20160504
  Receipt Date: 20160603
  Transmission Date: 20160815
  Serious: Yes (Other)
  Sender: FDA-Public Use
  Company Number: US-GLAXOSMITHKLINE-US2016060854

PATIENT
  Age: 73 Year
  Sex: Female

DRUGS (11)
  1. ALBUTEROL. [Concomitant]
     Active Substance: ALBUTEROL
  2. METOPROLOL. [Concomitant]
     Active Substance: METOPROLOL
  3. ARAVA [Concomitant]
     Active Substance: LEFLUNOMIDE
  4. CRESTOR [Concomitant]
     Active Substance: ROSUVASTATIN CALCIUM
  5. FOSAMAX [Concomitant]
     Active Substance: ALENDRONATE SODIUM
  6. ASPIRIN. [Concomitant]
     Active Substance: ASPIRIN
  7. EDARBYCLOR [Concomitant]
     Active Substance: AZILSARTAN KAMEDOXOMIL\CHLORTHALIDONE
  8. LEXAPRO [Concomitant]
     Active Substance: ESCITALOPRAM OXALATE
  9. PREDNISONE. [Concomitant]
     Active Substance: PREDNISONE
  10. AMLODIPINE [Concomitant]
     Active Substance: AMLODIPINE BESYLATE
  11. FLOVENT [Suspect]
     Active Substance: FLUTICASONE PROPIONATE
     Indication: CHRONIC OBSTRUCTIVE PULMONARY DISEASE
     Dosage: 2 PUFF(S), BID
     Route: 055
     Dates: start: 2013

REACTIONS (7)
  - Rheumatoid arthritis [Not Recovered/Not Resolved]
  - Drug dose omission [Unknown]
  - Device use error [Unknown]
  - Wheezing [Recovered/Resolved]
  - Osteopenia [Not Recovered/Not Resolved]
  - Product quality issue [Unknown]
  - Product use issue [Unknown]

NARRATIVE: CASE EVENT DATE: 201510
